FAERS Safety Report 16500761 (Version 1)
Quarter: 2019Q3

REPORT INFORMATION
  Report Type: Spontaneous
  Country: US (occurrence: US)
  Receive Date: 20190628
  Receipt Date: 20190628
  Transmission Date: 20191004
  Serious: Yes (Other)
  Sender: FDA-Public Use
  Company Number: None

PATIENT
  Age: 68 Year
  Sex: Female

DRUGS (2)
  1. DUPIXENT [Suspect]
     Active Substance: DUPILUMAB
     Dates: start: 20190614, end: 20190628
  2. DUPIXENT [Concomitant]
     Active Substance: DUPILUMAB
     Dates: start: 20190614, end: 20190628

REACTIONS (1)
  - Rash [None]
